FAERS Safety Report 7276720-0 (Version None)
Quarter: 2011Q1

REPORT INFORMATION
  Report Type: 
  Country: None (occurrence: None)
  Receive Date: 20110204
  Receipt Date: 20110126
  Transmission Date: 20110831
  Serious: Yes (Hospitalization)
  Sender: FDA-Public Use
  Company Number: US-ASTRAZENECA-2011SE04405

PATIENT
  Sex: Female

DRUGS (1)
  1. SYMBICORT [Suspect]
     Indication: ASTHMA
     Dosage: 160-4.5 MCGS  TWO DAILY
     Route: 055
     Dates: start: 20090101

REACTIONS (4)
  - SINUSITIS [None]
  - DYSPNOEA [None]
  - DRUG DOSE OMISSION [None]
  - ASTHMA [None]
